FAERS Safety Report 9829389 (Version 3)
Quarter: 2014Q1

REPORT INFORMATION
  Report Type: Spontaneous
  Country: US (occurrence: US)
  Receive Date: 20140120
  Receipt Date: 20140305
  Transmission Date: 20141002
  Serious: Yes (Death, Hospitalization)
  Sender: FDA-Public Use
  Company Number: US-BIOGENIDEC-2014BI004546

PATIENT
  Age: 58 Year
  Sex: Female

DRUGS (19)
  1. TYSABRI [Suspect]
     Indication: MULTIPLE SCLEROSIS
     Route: 042
     Dates: start: 20130318, end: 20130612
  2. AVONEX [Concomitant]
     Route: 030
  3. ACYCLOVIR [Concomitant]
  4. ASPIRIN [Concomitant]
  5. BACLOFEN [Concomitant]
  6. DOCUSATE SODIUM [Concomitant]
  7. FLUOXETINE [Concomitant]
  8. FOLIC ACID [Concomitant]
  9. GABAPENTIN [Concomitant]
  10. GABAPENTIN [Concomitant]
  11. IBUPROFEN [Concomitant]
  12. LACTOBACILLUS CULTURE CAPSULE [Concomitant]
  13. LOPERAMIDE [Concomitant]
  14. METRONIDAZOLE [Concomitant]
  15. ZOFRAN [Concomitant]
  16. PANTOPRAZOLE [Concomitant]
  17. PROMETHAZINE [Concomitant]
  18. SENOKOT [Concomitant]
  19. VITAMIN D [Concomitant]

REACTIONS (8)
  - Multiple sclerosis relapse [Not Recovered/Not Resolved]
  - Dehydration [Unknown]
  - Nausea [Unknown]
  - Hypokalaemia [Unknown]
  - Vomiting [Unknown]
  - Otitis media [Unknown]
  - Urinary tract infection [Unknown]
  - Clostridium difficile infection [Fatal]
